FAERS Safety Report 12114442 (Version 1)
Quarter: 2016Q1

REPORT INFORMATION
  Report Type: Spontaneous
  Country: US (occurrence: US)
  Receive Date: 20160225
  Receipt Date: 20160225
  Transmission Date: 20160526
  Serious: Yes (Other)
  Sender: FDA-Public Use
  Company Number: US-AMGEN-USASP2016020564

PATIENT
  Age: 84 Year
  Sex: Female

DRUGS (1)
  1. PROLIA [Suspect]
     Active Substance: DENOSUMAB
     Indication: PRODUCT USED FOR UNKNOWN INDICATION
     Dosage: UNK
     Route: 065

REACTIONS (7)
  - Tooth disorder [Unknown]
  - Tooth loss [Unknown]
  - Muscle spasms [Unknown]
  - Rash erythematous [Unknown]
  - Foot fracture [Unknown]
  - Bone density decreased [Unknown]
  - Rash pruritic [Unknown]

NARRATIVE: CASE EVENT DATE: 20151114
